FAERS Safety Report 7544410-2 (Version None)
Quarter: 2011Q2

REPORT INFORMATION
  Report Type: 
  Country: None (occurrence: None)
  Receive Date: 20110613
  Receipt Date: 20080411
  Transmission Date: 20111010
  Serious: Yes (Hospitalization, Other)
  Sender: FDA-Public Use
  Company Number: PHHY2008CA01933

PATIENT
  Sex: Female
  Weight: 47 kg

DRUGS (1)
  1. ZOMETA [Suspect]
     Indication: NEUROENDOCRINE CARCINOMA
     Dosage: 4 MG, QMO
     Route: 042
     Dates: start: 20070523

REACTIONS (5)
  - PATELLA FRACTURE [None]
  - IMMOBILE [None]
  - WRIST FRACTURE [None]
  - PELVIC FRACTURE [None]
  - FALL [None]
